FAERS Safety Report 5408345-3 (Version None)
Quarter: 2007Q3

REPORT INFORMATION
  Report Type: 
  Country: None (occurrence: None)
  Receive Date: 20070803
  Receipt Date: 20070727
  Transmission Date: 20080115
  Serious: Yes (Death, Life-Threatening, Hospitalization)
  Sender: FDA-Public Use
  Company Number: US020544

PATIENT
  Age: 67 Year
  Sex: Female

DRUGS (4)
  1. ACTIQ [Suspect]
     Indication: CANCER PAIN
     Dosage: 400-1200UG BUCCAL
     Route: 002
     Dates: start: 20070531, end: 20070606
  2. DURAGESIC-100 [Concomitant]
  3. VOLTAREN [Concomitant]
  4. PREGABALINE [Concomitant]

REACTIONS (3)
  - BRADYPNOEA [None]
  - RESPIRATORY DEPRESSION [None]
  - SOMNOLENCE [None]
